FAERS Safety Report 7996281-8 (Version None)
Quarter: 2011Q4

REPORT INFORMATION
  Report Type: 
  Country: None (occurrence: None)
  Receive Date: 20111220
  Receipt Date: 20111213
  Transmission Date: 20120403
  Serious: Yes (Hospitalization, Other)
  Sender: FDA-Public Use
  Company Number: US-ELI_LILLY_AND_COMPANY-US201112004146

PATIENT
  Age: 41 Year
  Sex: Male

DRUGS (3)
  1. HEPARIN [Concomitant]
     Dosage: 5000 U, UNKNOWN
  2. EFFIENT [Suspect]
     Dosage: 10 MG, UNKNOWN
  3. EFFIENT [Suspect]
     Indication: STENT PLACEMENT
     Dosage: 60 MG, UNKNOWN

REACTIONS (2)
  - IN-STENT CORONARY ARTERY RESTENOSIS [None]
  - CHEST PAIN [None]
